FAERS Safety Report 8563769-0 (Version None)
Quarter: 2012Q3

REPORT INFORMATION
  Report Type: 
  Country: None (occurrence: None)
  Receive Date: 20120803
  Receipt Date: 20120726
  Transmission Date: 20120928
  Serious: Yes (Death)
  Sender: FDA-Public Use
  Company Number: US-BRISTOL-MYERS SQUIBB COMPANY-16714644

PATIENT
  Age: 39 Year
  Sex: Female

DRUGS (8)
  1. MORPHINE SULFATE [Concomitant]
     Route: 048
  2. SENNA-MINT WAF [Concomitant]
     Route: 048
  3. YERVOY [Suspect]
     Indication: MALIGNANT MELANOMA
     Dosage: NO OF INF:1,DOSE TAKEN FOR 2 DAYS AT DAY 1 AND 22.
     Route: 042
     Dates: start: 20120531
  4. METFORMIN HCL [Concomitant]
     Route: 048
  5. LIDODERM [Concomitant]
  6. HYDROMORPHINE HYDROCHLORIDE [Concomitant]
     Route: 048
  7. PEPCID [Concomitant]
     Route: 048
  8. DEXAMETHASONE [Concomitant]
     Route: 048

REACTIONS (1)
  - NEOPLASM MALIGNANT [None]
